FAERS Safety Report 14775985 (Version 2)
Quarter: 2018Q2

REPORT INFORMATION
  Report Type: Report from Study
  Country: PE (occurrence: PE)
  Receive Date: 20180418
  Receipt Date: 20180507
  Transmission Date: 20180711
  Serious: Yes (Other)
  Sender: FDA-Public Use
  Company Number: PE-SA-2018SA056222

PATIENT
  Age: 27 Year
  Sex: Male

DRUGS (1)
  1. LEMTRADA [Suspect]
     Active Substance: ALEMTUZUMAB
     Indication: MULTIPLE SCLEROSIS
     Route: 041
     Dates: start: 20170915, end: 20170919

REACTIONS (12)
  - Pruritus [Recovering/Resolving]
  - Occult blood positive [Recovered/Resolved]
  - Globulins decreased [Not Recovered/Not Resolved]
  - Fungal skin infection [Recovering/Resolving]
  - Eosinophil count increased [Not Recovered/Not Resolved]
  - Creatine urine decreased [Not Recovered/Not Resolved]
  - Albumin globulin ratio increased [Unknown]
  - Blood bilirubin unconjugated increased [Not Recovered/Not Resolved]
  - Diarrhoea [Recovering/Resolving]
  - Onychoclasis [Recovering/Resolving]
  - Leukopenia [Not Recovered/Not Resolved]
  - Lymphocyte count decreased [Not Recovered/Not Resolved]

NARRATIVE: CASE EVENT DATE: 201710
